FAERS Safety Report 9205447 (Version 1)
Quarter: 2013Q2

REPORT INFORMATION
  Report Type: Spontaneous
  Country: US (occurrence: US)
  Receive Date: 20130403
  Receipt Date: 20130403
  Transmission Date: 20140414
  Serious: Yes (Other)
  Sender: FDA-Public Use
  Company Number: US-AMGEN-USASP2013022214

PATIENT
  Age: 46 Year
  Sex: Female
  Weight: 61.22 kg

DRUGS (3)
  1. ENBREL [Suspect]
     Indication: PRODUCT USED FOR UNKNOWN INDICATION
     Dosage: 50 MG, QWK
     Route: 058
  2. VITAMIN D /00107901/ [Concomitant]
     Dosage: 1000 UNIT
  3. IBUPROFEN [Concomitant]
     Dosage: 200 MG, UNK

REACTIONS (1)
  - Breast cancer [Unknown]
